FAERS Safety Report 13406886 (Version 1)
Quarter: 2017Q2

REPORT INFORMATION
  Report Type: Spontaneous
  Country: ES (occurrence: ES)
  Receive Date: 20170405
  Receipt Date: 20170405
  Transmission Date: 20170830
  Serious: Yes (Hospitalization)
  Sender: FDA-Public Use
  Company Number: ES-PFIZER INC-2017143009

PATIENT
  Age: 77 Year
  Sex: Male

DRUGS (4)
  1. DIANBEN [Concomitant]
     Active Substance: METFORMIN HYDROCHLORIDE
     Indication: DIABETES MELLITUS
  2. SPIRIVA [Concomitant]
     Active Substance: TIOTROPIUM BROMIDE MONOHYDRATE
     Indication: CHRONIC OBSTRUCTIVE PULMONARY DISEASE
     Dosage: 1 DF, 2X/DAY
     Route: 055
  3. FOSTER [Concomitant]
     Active Substance: BECLOMETHASONE\FORMOTEROL
     Indication: CHRONIC OBSTRUCTIVE PULMONARY DISEASE
     Dosage: 1 INHALATION EVERY 12H
  4. SOMAVERT [Suspect]
     Active Substance: PEGVISOMANT
     Dosage: 30 UNIT NOT PROVIDED
     Route: 058
     Dates: start: 20000101

REACTIONS (1)
  - Pulmonary infarction [Recovered/Resolved]

NARRATIVE: CASE EVENT DATE: 201609
